FAERS Safety Report 10064259 (Version 1)
Quarter: 2014Q2

REPORT INFORMATION
  Report Type: Spontaneous
  Country: FR (occurrence: None)
  Receive Date: 20140404
  Receipt Date: 20140404
  Transmission Date: 20141212
  Serious: Yes (Other)
  Sender: FDA-Public Use
  Company Number: 2014P1002898

PATIENT
  Age: 52 Year
  Sex: Female

DRUGS (9)
  1. PLAQUENIL TABLET [Suspect]
     Indication: MYALGIA
     Route: 048
     Dates: start: 201305, end: 20140130
  2. OMEPRAZOLE [Concomitant]
  3. ALPRAZOLAM [Concomitant]
  4. FLURBIPROFEN (CEBUTID) [Concomitant]
  5. MINALCIPRAN (IXEL) [Concomitant]
  6. LOPRAZOLAM (HAVLANE) [Concomitant]
  7. BISOPROLOL (DENTENSIEL) [Concomitant]
  8. LEVOTHYROXINE (LEVOTHYROX) [Concomitant]
  9. BILASTINE (BILASKA) [Concomitant]

REACTIONS (4)
  - Bundle branch block left [None]
  - Interstitial lung disease [None]
  - Dilatation ventricular [None]
  - Ventricular hypokinesia [None]
